FAERS Safety Report 9508792 (Version 1)
Quarter: 2013Q3

REPORT INFORMATION
  Report Type: Spontaneous
  Country: US (occurrence: US)
  Receive Date: 20130909
  Receipt Date: 20130909
  Transmission Date: 20140515
  Serious: No
  Sender: FDA-Public Use
  Company Number: US-BRISTOL-MYERS SQUIBB COMPANY-19118496

PATIENT
  Sex: Female

DRUGS (1)
  1. ABILIFY INJECTION [Suspect]
     Dosage: ABILIFY MAINTENA INJECTION
     Route: 065
     Dates: start: 201306, end: 201306

REACTIONS (2)
  - Mood swings [Unknown]
  - Drug ineffective [Unknown]
